FAERS Safety Report 24024512 (Version 1)
Quarter: 2024Q2

REPORT INFORMATION
  Report Type: Spontaneous
  Country: US (occurrence: US)
  Receive Date: 20240628
  Receipt Date: 20240628
  Transmission Date: 20240716
  Serious: Yes (Death, Hospitalization)
  Sender: FDA-Public Use
  Company Number: US-BoehringerIngelheim-2024-BI-036568

PATIENT
  Sex: Male

DRUGS (1)
  1. JARDIANCE [Suspect]
     Active Substance: EMPAGLIFLOZIN
     Indication: Product used for unknown indication

REACTIONS (6)
  - Dyspnoea [Fatal]
  - Hypotension [Fatal]
  - Cardiac failure [Fatal]
  - Arteriosclerosis [Fatal]
  - Renal disorder [Fatal]
  - Cardiac valve disease [Fatal]

NARRATIVE: CASE EVENT DATE: 20240608
